FAERS Safety Report 11621125 (Version 1)
Quarter: 2015Q4

REPORT INFORMATION
  Report Type: Spontaneous
  Country: US (occurrence: None)
  Receive Date: 20151012
  Receipt Date: 20151012
  Transmission Date: 20160304
  Serious: No
  Sender: FDA-Public Use
  Company Number: US-MDT-ADR-2015-01942

PATIENT
  Age: 37 Year
  Sex: Male

DRUGS (1)
  1. LIORESAL [Suspect]
     Active Substance: BACLOFEN
     Indication: MUSCLE SPASTICITY
     Dosage: 2401.6 MCG/DAY

REACTIONS (4)
  - Nausea [None]
  - Muscular weakness [None]
  - Dizziness [None]
  - Headache [None]
